FAERS Safety Report 24290698 (Version 1)
Quarter: 2024Q3

REPORT INFORMATION
  Report Type: Spontaneous
  Country: CN (occurrence: CN)
  Receive Date: 20240906
  Receipt Date: 20240906
  Transmission Date: 20241017
  Serious: Yes (Other)
  Sender: BAYER
  Company Number: CN-BAYER-2024A127703

PATIENT
  Age: 86 Year
  Sex: Male
  Weight: 44 kg

DRUGS (1)
  1. AVELOX [Suspect]
     Active Substance: MOXIFLOXACIN HYDROCHLORIDE
     Indication: Pneumonia
     Dosage: 0.4 G, QD
     Route: 041
     Dates: start: 20240802, end: 20240804

REACTIONS (6)
  - Neuropsychological symptoms [Recovering/Resolving]
  - Hallucination [Recovering/Resolving]
  - Disorganised speech [Recovering/Resolving]
  - C-reactive protein increased [None]
  - Neutrophil count increased [None]
  - White blood cell count increased [None]

NARRATIVE: CASE EVENT DATE: 20240804
